FAERS Safety Report 13411592 (Version 2)
Quarter: 2017Q4

REPORT INFORMATION
  Report Type: Spontaneous
  Country: US (occurrence: US)
  Receive Date: 20170406
  Receipt Date: 20171123
  Transmission Date: 20180320
  Serious: No
  Sender: FDA-Public Use
  Company Number: US-JNJFOC-20170302233

PATIENT
  Sex: Male

DRUGS (8)
  1. RISPERDAL [Suspect]
     Active Substance: RISPERIDONE
     Indication: AGITATION
     Dosage: VARYING DOSES OF 0.5, 01, 02 AND 03 MG
     Route: 048
     Dates: start: 20060309, end: 20070122
  2. RISPERDAL [Suspect]
     Active Substance: RISPERIDONE
     Indication: AFFECT LABILITY
     Dosage: VARYING DOSES OF 0.5, 01, 02 AND 03 MG
     Route: 048
     Dates: start: 20060309, end: 20070122
  3. RISPERDAL [Suspect]
     Active Substance: RISPERIDONE
     Indication: IRRITABILITY
     Dosage: VARYING DOSES OF 0.5, 01, 02 AND 03 MG
     Route: 048
     Dates: start: 20060309, end: 20070122
  4. RISPERDAL [Suspect]
     Active Substance: RISPERIDONE
     Indication: ATTENTION DEFICIT/HYPERACTIVITY DISORDER
     Dosage: VARYING DOSES OF 0.5, 01, 02 AND 03 MG
     Route: 048
     Dates: start: 20060309, end: 20070122
  5. INVEGA [Suspect]
     Active Substance: PALIPERIDONE
     Indication: BIPOLAR DISORDER
     Route: 048
     Dates: start: 20070122, end: 20070801
  6. RISPERDAL [Suspect]
     Active Substance: RISPERIDONE
     Indication: PSYCHOTIC DISORDER
     Dosage: VARYING DOSES OF 0.5, 01, 02 AND 03 MG
     Route: 048
     Dates: start: 20060309, end: 20070122
  7. RISPERDAL [Suspect]
     Active Substance: RISPERIDONE
     Indication: AUTISM SPECTRUM DISORDER
     Dosage: VARYING DOSES OF 0.5, 01, 02 AND 03 MG
     Route: 048
     Dates: start: 20060309, end: 20070122
  8. INVEGA [Suspect]
     Active Substance: PALIPERIDONE
     Indication: AUTISM SPECTRUM DISORDER
     Route: 048
     Dates: start: 20070122, end: 20070801

REACTIONS (2)
  - Emotional disorder [Unknown]
  - Gynaecomastia [Unknown]
